FAERS Safety Report 5127590-8 (Version None)
Quarter: 2006Q4

REPORT INFORMATION
  Report Type: 
  Country: None (occurrence: None)
  Receive Date: 20061011
  Receipt Date: 20061005
  Transmission Date: 20070319
  Serious: No
  Sender: FDA-Public Use
  Company Number: E2090-00107-SPO-ES

PATIENT
  Sex: Female

DRUGS (2)
  1. ZONEGRAN [Suspect]
     Dosage: ORAL
     Route: 048
  2. TOPAMAX [Concomitant]

REACTIONS (2)
  - DRUG INTERACTION [None]
  - HAEMATURIA [None]
